FAERS Safety Report 20771601 (Version 2)
Quarter: 2022Q2

REPORT INFORMATION
  Report Type: Report from Study
  Country: EG (occurrence: EG)
  Receive Date: 20220430
  Receipt Date: 20220614
  Transmission Date: 20220720
  Serious: Yes (Other)
  Sender: FDA-Public Use
  Company Number: EG-NOVARTISPH-NVSC2022EG098174

PATIENT
  Age: 20 Year
  Sex: Male

DRUGS (1)
  1. GLIVEC [Suspect]
     Active Substance: IMATINIB MESYLATE
     Indication: Chronic myeloid leukaemia
     Dosage: 400 MG, QD (400 MG/DAY (1 TAB/DAY) OR 800 MG/DAY (2 TABS/DAY) [THE REPORTER COULDN^T REMEMBER THE EX
     Route: 048
     Dates: start: 202107, end: 202202

REACTIONS (5)
  - Lymphocyte count increased [Recovered/Resolved]
  - Cytogenetic analysis abnormal [Recovering/Resolving]
  - Nasopharyngitis [Recovered/Resolved]
  - Product dose omission issue [Recovered/Resolved]
  - Drug ineffective [Not Recovered/Not Resolved]

NARRATIVE: CASE EVENT DATE: 20211001
